FAERS Safety Report 8576468-6 (Version None)
Quarter: 2012Q3

REPORT INFORMATION
  Report Type: 
  Country: None (occurrence: None)
  Receive Date: 20120807
  Receipt Date: 20120725
  Transmission Date: 20120928
  Serious: Yes (Other)
  Sender: FDA-Public Use
  Company Number: US-ROCHE-1089140

PATIENT
  Sex: Female
  Weight: 52.21 kg

DRUGS (9)
  1. HERCEPTIN [Suspect]
     Indication: BREAST CANCER
     Dates: start: 20101018, end: 20111101
  2. DECADRON PHOSPHATE [Concomitant]
  3. BENADRYL [Concomitant]
  4. ZOFRAN [Concomitant]
  5. STOOL SOFTENER (NAME UNK) [Concomitant]
  6. KYTRIL [Concomitant]
  7. PEPCID [Concomitant]
  8. VITAMIN AND MINERAL PRENATAL SUPPLEMENT W/ FOLIC ACID CAP [Concomitant]
     Dates: start: 20120101
  9. HYDROCORTISONE [Concomitant]

REACTIONS (2)
  - ABORTION THREATENED [None]
  - MATERNAL EXPOSURE DURING PREGNANCY [None]
